FAERS Safety Report 4767647-4 (Version None)
Quarter: 2005Q3

REPORT INFORMATION
  Report Type: 
  Country: None (occurrence: None)
  Receive Date: 20050912
  Receipt Date: 20050829
  Transmission Date: 20060218
  Serious: Yes (Other)
  Sender: FDA-Public Use
  Company Number: 2005122769

PATIENT
  Age: 35 Year
  Sex: Male

DRUGS (1)
  1. LIPITOR [Suspect]
     Indication: ILL-DEFINED DISORDER
     Dosage: (40 MG,), ORAL
     Route: 048
     Dates: start: 20040101, end: 20040101

REACTIONS (4)
  - DERMATOMYOSITIS [None]
  - DIABETES MELLITUS NON-INSULIN-DEPENDENT [None]
  - LIVER FUNCTION TEST ABNORMAL [None]
  - MUSCULAR WEAKNESS [None]
